FAERS Safety Report 9045848 (Version 1)
Quarter: 2013Q1

REPORT INFORMATION
  Report Type: Spontaneous
  Country: PR (occurrence: PR)
  Receive Date: 20130201
  Receipt Date: 20130201
  Transmission Date: 20140127
  Serious: No
  Sender: FDA-Public Use
  Company Number: PR-ABBOTT-12P-131-1023151-00

PATIENT
  Sex: Female
  Weight: 79.45 kg

DRUGS (4)
  1. HUMIRA [Suspect]
     Indication: RHEUMATOID ARTHRITIS
     Route: 058
     Dates: start: 201110, end: 201209
  2. HUMIRA [Suspect]
     Route: 058
     Dates: start: 201212
  3. SYNTHROID [Concomitant]
     Indication: THYROID NEOPLASM
     Route: 048
     Dates: start: 2009
  4. ZANTAC [Concomitant]
     Indication: GASTRITIS
     Dosage: AS REQUIRED
     Route: 048

REACTIONS (1)
  - Tooth infection [Recovering/Resolving]
